FAERS Safety Report 4942998-9 (Version None)
Quarter: 2006Q1

REPORT INFORMATION
  Report Type: 
  Country: None (occurrence: None)
  Receive Date: 20060314
  Receipt Date: 20060116
  Transmission Date: 20060701
  Serious: Yes (Other)
  Sender: FDA-Public Use
  Company Number: JP-JPN-A200600206

PATIENT
  Age: 35 Year
  Sex: Female

DRUGS (4)
  1. RELENZA [Suspect]
     Indication: INFLUENZA
     Dosage: 10MG TWICE PER DAY
     Route: 055
     Dates: start: 20060104, end: 20060107
  2. ASVERIN [Concomitant]
     Indication: BRONCHITIS
     Dosage: 3TAB PER DAY
     Route: 048
     Dates: start: 20060104, end: 20060107
  3. MUCODYNE [Concomitant]
     Indication: BRONCHITIS
     Dosage: 3TAB PER DAY
     Route: 048
     Dates: start: 20060104, end: 20060107
  4. FLOMOX [Concomitant]
     Indication: BRONCHITIS
     Dosage: 3TAB PER DAY
     Route: 048
     Dates: start: 20060104, end: 20060107

REACTIONS (3)
  - ASTIGMATISM [None]
  - MYOPIA [None]
  - VISUAL ACUITY REDUCED [None]
